FAERS Safety Report 5374242-5 (Version None)
Quarter: 2007Q2

REPORT INFORMATION
  Report Type: 
  Country: None (occurrence: None)
  Receive Date: 20070629
  Receipt Date: 20070110
  Transmission Date: 20071010
  Serious: Yes (Disabling)
  Sender: FDA-Public Use
  Company Number: US-ROCHE-384417

PATIENT
  Age: 28 Year
  Sex: Male
  Weight: 66.2 kg

DRUGS (2)
  1. ACCUTANE [Suspect]
     Indication: ACNE
     Route: 048
     Dates: start: 19940516, end: 19941213
  2. ACCUTANE [Suspect]
     Route: 048
     Dates: start: 19960708, end: 19960907

REACTIONS (56)
  - ANGINA PECTORIS [None]
  - ANXIETY [None]
  - ARTHROPATHY [None]
  - ASPARTATE AMINOTRANSFERASE INCREASED [None]
  - BACK PAIN [None]
  - BLOOD CHOLESTEROL INCREASED [None]
  - BLOOD TRIGLYCERIDES INCREASED [None]
  - CARDIAC MURMUR [None]
  - CHEST PAIN [None]
  - CLOSTRIDIAL INFECTION [None]
  - COLITIS [None]
  - COLITIS ULCERATIVE [None]
  - DEPRESSION [None]
  - DRUG INEFFECTIVE [None]
  - DUODENITIS [None]
  - EPICONDYLITIS [None]
  - EYE INJURY [None]
  - FALL [None]
  - GASTROINTESTINAL DISORDER [None]
  - GASTROOESOPHAGEAL REFLUX DISEASE [None]
  - GRANULOMA [None]
  - HAEMATOCRIT DECREASED [None]
  - HAEMORRHOIDS [None]
  - HEADACHE [None]
  - HYPERTENSION [None]
  - INFLAMMATORY BOWEL DISEASE [None]
  - INTERNAL INJURY [None]
  - INTESTINAL HAEMORRHAGE [None]
  - LIGAMENT RUPTURE [None]
  - LIP ULCERATION [None]
  - MOUTH ULCERATION [None]
  - MUSCULOSKELETAL PAIN [None]
  - MYOFASCITIS [None]
  - NAIL INFECTION [None]
  - NAUSEA [None]
  - NECK PAIN [None]
  - PANIC ATTACK [None]
  - PARAESTHESIA [None]
  - PECTUS EXCAVATUM [None]
  - PLEURISY [None]
  - PROCTITIS ULCERATIVE [None]
  - PSEUDOMEMBRANOUS COLITIS [None]
  - RECTAL HAEMORRHAGE [None]
  - REFUSAL OF TREATMENT BY PATIENT [None]
  - REPETITIVE STRAIN INJURY [None]
  - ROAD TRAFFIC ACCIDENT [None]
  - SCAR [None]
  - SPIDER NAEVUS [None]
  - STRESS [None]
  - SURGERY [None]
  - TENDON INJURY [None]
  - TENDONITIS [None]
  - TONGUE DISCOLOURATION [None]
  - UMBILICAL HERNIA REPAIR [None]
  - VOMITING [None]
  - WHITE BLOOD CELL COUNT INCREASED [None]
